FAERS Safety Report 13055676 (Version 1)
Quarter: 2016Q4

REPORT INFORMATION
  Report Type: Spontaneous
  Country: US (occurrence: US)
  Receive Date: 20161222
  Receipt Date: 20161222
  Transmission Date: 20170207
  Serious: Yes (Hospitalization)
  Sender: FDA-Public Use
  Company Number: US-BAYER-2016-236941

PATIENT
  Age: 90 Year
  Sex: Female
  Weight: 68.48 kg

DRUGS (5)
  1. MIRALAX [Suspect]
     Active Substance: POLYETHYLENE GLYCOL 3350
     Indication: GASTROINTESTINAL DISORDER
     Dosage: 1-2 TEASPOON, OM WITH COFFEE
     Route: 048
     Dates: start: 2015
  2. MIRALAX [Suspect]
     Active Substance: POLYETHYLENE GLYCOL 3350
     Indication: CONSTIPATION
     Dosage: 1-2 TEASPOON, OM WITH COFFEE AND ADDITION 1 TEASPOON IN AFTERNOON WITH TEA IF CONSTIPATED
     Route: 048
  3. INSULIN [Concomitant]
     Active Substance: INSULIN NOS
  4. COUMADIN [Concomitant]
     Active Substance: WARFARIN SODIUM
  5. HEART MEDICATION (NOS) [Concomitant]
     Active Substance: UNSPECIFIED INGREDIENT
     Dosage: UNK

REACTIONS (2)
  - Rectal haemorrhage [Unknown]
  - Product use issue [Unknown]

NARRATIVE: CASE EVENT DATE: 2015
